FAERS Safety Report 12220491 (Version 1)
Quarter: 2016Q1

REPORT INFORMATION
  Report Type: Spontaneous
  Country: US (occurrence: US)
  Receive Date: 20160330
  Receipt Date: 20160330
  Transmission Date: 20160526
  Serious: No
  Sender: FDA-Public Use
  Company Number: US-MYLANLABS-2015M1008864

PATIENT
  Sex: Female

DRUGS (2)
  1. EMSAM [Suspect]
     Active Substance: SELEGILINE
     Indication: DEPRESSION
  2. EMSAM [Suspect]
     Active Substance: SELEGILINE
     Indication: ANXIETY
     Dosage: 6 MG/24H, QD
     Route: 062
     Dates: start: 20150113

REACTIONS (6)
  - Drug ineffective [Not Recovered/Not Resolved]
  - Skin reaction [Not Recovered/Not Resolved]
  - Insomnia [Not Recovered/Not Resolved]
  - Application site pruritus [Not Recovered/Not Resolved]
  - Constipation [Not Recovered/Not Resolved]
  - Application site rash [Not Recovered/Not Resolved]

NARRATIVE: CASE EVENT DATE: 2015
